FAERS Safety Report 7533501-8 (Version None)
Quarter: 2011Q2

REPORT INFORMATION
  Report Type: 
  Country: None (occurrence: None)
  Receive Date: 20110608
  Receipt Date: 20060202
  Transmission Date: 20111010
  Serious: Yes (Death, Hospitalization)
  Sender: FDA-Public Use
  Company Number: PHMT2006CA00615

PATIENT
  Sex: Female

DRUGS (15)
  1. MORPHINE [Concomitant]
  2. VITAMIN D [Concomitant]
  3. ATIVAN [Concomitant]
  4. COLACE [Concomitant]
  5. COREG [Concomitant]
  6. PANTOLOC ^SOLVAY^ [Concomitant]
  7. ASAPHEN [Concomitant]
  8. FERROUS SULFATE TAB [Concomitant]
  9. SYNTHROID [Concomitant]
  10. LASIX [Concomitant]
  11. DIGOXIN [Concomitant]
  12. CARVEDILOL [Concomitant]
  13. STATEX [Concomitant]
  14. SANDOSTATIN LAR [Suspect]
     Indication: THYROID CANCER
     Dosage: 10 MG, EVERY 4 WEEKS
     Dates: start: 20050823
  15. ATORVASTATIN [Concomitant]

REACTIONS (1)
  - DEATH [None]
